FAERS Safety Report 18322729 (Version 3)
Quarter: 2020Q4

REPORT INFORMATION
  Report Type: Spontaneous
  Country: US (occurrence: US)
  Receive Date: 20200928
  Receipt Date: 20201224
  Transmission Date: 20210113
  Serious: Yes (Other)
  Sender: FDA-Public Use
  Company Number: US-BAYER-2020-200314

PATIENT
  Age: 8 Year
  Sex: Male

DRUGS (2)
  1. KOGENATE FS [Suspect]
     Active Substance: ANTIHEMOPHILIC FACTOR, HUMAN RECOMBINANT
     Dosage: 590 IU ON MONDAY AND WEDNESDAY AND 1180 ON FRIDAY
  2. KOGENATE FS [Suspect]
     Active Substance: ANTIHEMOPHILIC FACTOR, HUMAN RECOMBINANT
     Dosage: 1143 IU
     Route: 042

REACTIONS (4)
  - Malaise [None]
  - Arthralgia [None]
  - Haemarthrosis [Recovered/Resolved]
  - Pyrexia [None]

NARRATIVE: CASE EVENT DATE: 20200914
